FAERS Safety Report 9251132 (Version 2)
Quarter: 2013Q3

REPORT INFORMATION
  Report Type: Spontaneous
  Country: US (occurrence: US)
  Receive Date: 20130424
  Receipt Date: 20130910
  Transmission Date: 20140515
  Serious: Yes (Hospitalization, Other)
  Sender: FDA-Public Use
  Company Number: US-ASTRAZENECA-2013SE27406

PATIENT
  Sex: Male
  Weight: 59 kg

DRUGS (7)
  1. NEXIUM [Suspect]
     Route: 048
     Dates: start: 2005
  2. PROTONIX [Concomitant]
  3. ZANTAC [Concomitant]
     Dosage: 1 DAILY WHEN OUT OF NEXIUM
  4. PEPCID [Concomitant]
     Dosage: 1 DAILY
  5. CLONIDINE [Concomitant]
  6. HYDROCODONE [Concomitant]
  7. MINOXIDIL [Concomitant]

REACTIONS (7)
  - Hip fracture [Unknown]
  - Cerebrovascular accident [Unknown]
  - Arthralgia [Unknown]
  - Osteoporosis [Unknown]
  - Bone disorder [Unknown]
  - Liver disorder [Unknown]
  - Depression [Unknown]
